FAERS Safety Report 10607629 (Version 1)
Quarter: 2014Q4

REPORT INFORMATION
  Report Type: Spontaneous
  Country: FR (occurrence: FR)
  Receive Date: 20141125
  Receipt Date: 20141125
  Transmission Date: 20150529
  Serious: Yes (Hospitalization, Other)
  Sender: FDA-Public Use
  Company Number: FR-PFIZER INC-2014318932

PATIENT
  Age: 37 Year
  Sex: Male

DRUGS (4)
  1. EFFEXOR LP [Suspect]
     Active Substance: VENLAFAXINE HYDROCHLORIDE
     Dosage: 60 DF OF 75 MG, SINGLE
     Route: 048
     Dates: start: 20131008, end: 20131008
  2. BACLOFEN. [Suspect]
     Active Substance: BACLOFEN
     Dosage: 90 DF OF 10 UNK, SINGLE
     Route: 048
     Dates: start: 20131008, end: 20131008
  3. SERESTA [Suspect]
     Active Substance: OXAZEPAM
     Dosage: 16 DF OF 50 MG, SINGLE
     Route: 048
     Dates: start: 20131008, end: 20131008
  4. DIAZEPAM. [Suspect]
     Active Substance: DIAZEPAM
     Dosage: 80 DF OF 20 UNK, SINGLE
     Route: 048
     Dates: start: 20131008, end: 20131008

REACTIONS (5)
  - Shock [Recovered/Resolved]
  - Toxicity to various agents [Recovered/Resolved]
  - Poisoning deliberate [Recovered/Resolved]
  - Intentional overdose [Recovered/Resolved]
  - Depressed level of consciousness [Recovered/Resolved]

NARRATIVE: CASE EVENT DATE: 20131008
